FAERS Safety Report 12940541 (Version 4)
Quarter: 2018Q2

REPORT INFORMATION
  Report Type: Report from Study
  Country: US (occurrence: US)
  Receive Date: 20161114
  Receipt Date: 20180627
  Transmission Date: 20180711
  Serious: Yes (Death, Other)
  Sender: FDA-Public Use
  Company Number: US-ACTELION-A-US2016-145375

PATIENT
  Age: 69 Year
  Sex: Female
  Weight: 48.73 kg

DRUGS (3)
  1. UPTRAVI [Suspect]
     Active Substance: SELEXIPAG
     Dosage: UNK
     Route: 048
     Dates: start: 20160918
  2. TRACLEER [Suspect]
     Active Substance: BOSENTAN
     Indication: PULMONARY ARTERIAL HYPERTENSION
     Dosage: 125 MG, BID
     Route: 048
  3. UPTRAVI [Suspect]
     Active Substance: SELEXIPAG
     Indication: PULMONARY ARTERIAL HYPERTENSION
     Dosage: 800 MCG, BID
     Route: 048
     Dates: start: 20161101

REACTIONS (8)
  - Pain [Unknown]
  - Metastases to bone [Unknown]
  - Death [Fatal]
  - Lung cancer metastatic [Unknown]
  - Metastases to pancreas [Unknown]
  - Metastases to liver [Unknown]
  - Metastases to kidney [Unknown]
  - Nausea [Unknown]

NARRATIVE: CASE EVENT DATE: 20161102
